FAERS Safety Report 16508134 (Version 1)
Quarter: 2019Q3

REPORT INFORMATION
  Report Type: Spontaneous
  Country: US (occurrence: US)
  Receive Date: 20190702
  Receipt Date: 20190702
  Transmission Date: 20191004
  Serious: No
  Sender: FDA-Public Use
  Company Number: US-ROCHE-2129623

PATIENT
  Sex: Female

DRUGS (9)
  1. XELODA [Suspect]
     Active Substance: CAPECITABINE
     Indication: BREAST CANCER FEMALE
     Route: 048
     Dates: start: 20180428
  2. ACETAMINOPHEN/HYDROCODONE [Concomitant]
     Active Substance: ACETAMINOPHEN\HYDROCODONE
  3. LINZESS [Concomitant]
     Active Substance: LINACLOTIDE
  4. SENEXON (UNITED STATES) [Concomitant]
  5. ONDANSETRON [Concomitant]
     Active Substance: ONDANSETRON
  6. ZOLPIDEM [Concomitant]
     Active Substance: ZOLPIDEM TARTRATE
  7. COLACE [Concomitant]
     Active Substance: DOCUSATE SODIUM
  8. XELODA [Suspect]
     Active Substance: CAPECITABINE
     Route: 048
     Dates: start: 20171127, end: 20171127
  9. GABAPENTIN. [Concomitant]
     Active Substance: GABAPENTIN

REACTIONS (2)
  - Constipation [Unknown]
  - Pain [Recovered/Resolved]
